FAERS Safety Report 10040778 (Version 1)
Quarter: 2014Q1

REPORT INFORMATION
  Report Type: Spontaneous
  Country: GB (occurrence: GB)
  Receive Date: 20140327
  Receipt Date: 20140327
  Transmission Date: 20141002
  Serious: Yes (Other)
  Sender: FDA-Public Use
  Company Number: GB-ROCHE-1370861

PATIENT
  Sex: 0

DRUGS (2)
  1. HERCEPTIN [Suspect]
     Indication: PRODUCT USED FOR UNKNOWN INDICATION
     Route: 058
  2. HERCEPTIN [Suspect]
     Route: 042

REACTIONS (1)
  - Pain in extremity [Unknown]
